FAERS Safety Report 4803440-1 (Version None)
Quarter: 2005Q4

REPORT INFORMATION
  Report Type: 
  Country: None (occurrence: None)
  Receive Date: 20051014
  Receipt Date: 20050930
  Transmission Date: 20060501
  Serious: Yes (Hospitalization)
  Sender: FDA-Public Use
  Company Number: HQWYE400512SEP05

PATIENT
  Age: 30 Year
  Sex: Female

DRUGS (3)
  1. TRIQUILAR-28 [Suspect]
     Indication: ORAL CONTRACEPTION
     Dosage: 1 TABLET 1X PER 1 DAY, ORAL
     Route: 048
     Dates: start: 20050711, end: 20050801
  2. FLAGYL [Suspect]
     Indication: VULVOVAGINITIS TRICHOMONAL
     Dosage: SEE IMAGE
     Route: 067
     Dates: start: 20050811, end: 20050821
  3. FLAGYL [Suspect]
     Indication: VULVOVAGINITIS TRICHOMONAL
     Dosage: SEE IMAGE
     Route: 067
     Dates: start: 20050811, end: 20050821

REACTIONS (7)
  - BLISTER [None]
  - CONJUNCTIVAL HYPERAEMIA [None]
  - ERYTHEMA MULTIFORME [None]
  - ERYTHEMA NODOSUM [None]
  - MOUTH ULCERATION [None]
  - TOXIC SKIN ERUPTION [None]
  - VULVOVAGINITIS TRICHOMONAL [None]
